FAERS Safety Report 8690782 (Version 9)
Quarter: 2016Q2

REPORT INFORMATION
  Report Type: Spontaneous
  Country: US (occurrence: US)
  Receive Date: 20120728
  Receipt Date: 20160511
  Transmission Date: 20160815
  Serious: Yes (Hospitalization, Disabling, Other)
  Sender: FDA-Public Use
  Company Number: US-009507513-1207USA005741

PATIENT
  Sex: Female
  Weight: 61.91 kg

DRUGS (8)
  1. FOSAMAX PLUS D [Suspect]
     Active Substance: ALENDRONATE SODIUM\CHOLECALCIFEROL
     Indication: PRODUCT USED FOR UNKNOWN INDICATION
     Dosage: UNK, UNKNOWN
     Route: 048
  2. ACTONEL [Suspect]
     Active Substance: RISEDRONATE SODIUM
     Indication: PRODUCT USED FOR UNKNOWN INDICATION
     Dosage: UNK
  3. BONDRONAT [Suspect]
     Active Substance: IBANDRONIC ACID
     Indication: PRODUCT USED FOR UNKNOWN INDICATION
     Dosage: UNK
  4. FOSAMAX [Suspect]
     Active Substance: ALENDRONATE SODIUM
     Dosage: 70 MG, QW
     Route: 048
     Dates: start: 20010510
  5. BONIVA [Suspect]
     Active Substance: IBANDRONATE SODIUM
     Indication: PRODUCT USED FOR UNKNOWN INDICATION
  6. FOSAMAX [Suspect]
     Active Substance: ALENDRONATE SODIUM
     Indication: OSTEOPOROSIS
     Dosage: 10 MG, QD
     Route: 048
  7. ZOMETA [Suspect]
     Active Substance: ZOLEDRONIC ACID
     Indication: PRODUCT USED FOR UNKNOWN INDICATION
     Dosage: UNK
  8. ALENDRONATE SODIUM. [Suspect]
     Active Substance: ALENDRONATE SODIUM
     Dosage: 70 MG, UNK
     Route: 048

REACTIONS (36)
  - Joint injury [Unknown]
  - Femur fracture [Recovered/Resolved]
  - Hypertension [Unknown]
  - Enostosis [Unknown]
  - Exostosis [Unknown]
  - Depression [Not Recovered/Not Resolved]
  - Foot fracture [Unknown]
  - Neck pain [Unknown]
  - Osteopenia [Unknown]
  - Bladder prolapse [Unknown]
  - Epilepsy [Unknown]
  - Emotional distress [Not Recovered/Not Resolved]
  - Food poisoning [Unknown]
  - Hyperlipidaemia [Unknown]
  - Arthralgia [Unknown]
  - Arthritis [Unknown]
  - Fall [Unknown]
  - Anxiety disorder [Not Recovered/Not Resolved]
  - Osteoarthritis [Unknown]
  - Dizziness [Recovered/Resolved]
  - Haemorrhoids [Unknown]
  - Actinic keratosis [Unknown]
  - Hepatic lesion [Unknown]
  - Dystrophic calcification [Unknown]
  - Arthropathy [Unknown]
  - Bursitis [Unknown]
  - Pain in extremity [Unknown]
  - Migraine [Unknown]
  - Lymphoedema [Unknown]
  - Arthropathy [Unknown]
  - Gastrooesophageal reflux disease [Unknown]
  - Metastases to bone [Unknown]
  - Diarrhoea [Unknown]
  - Foot operation [Unknown]
  - Plastic surgery to the face [Unknown]
  - Hypoglycaemia [Unknown]

NARRATIVE: CASE EVENT DATE: 200012
